FAERS Safety Report 9189793 (Version 1)
Quarter: 2013Q1

REPORT INFORMATION
  Report Type: Spontaneous
  Country: US (occurrence: None)
  Receive Date: 20120703
  Receipt Date: 20120703
  Transmission Date: 20140127
  Serious: No
  Sender: FDA-Public Use
  Company Number: PHEH2012US009681

PATIENT
  Age: 26 Year
  Sex: Female
  Weight: 72.12 kg

DRUGS (5)
  1. GILENYA (FTY) CAPSULE [Suspect]
     Indication: MULTIPLE SCLEROSIS
     Route: 048
     Dates: start: 20110926
  2. ADDERALL (AMFETAMINE ASPARTATE, AMFETTAMINE SULFATE, DEXAMFETAMINE SACCHARATE, DEXAMFETAMINE SULFATE) [Concomitant]
  3. WELLBUTRIN (BUPROPION HYDROCHLORIDE) [Concomitant]
  4. VITAMIN C [Concomitant]
  5. MAGNESIUM (MAGNESIUM) [Concomitant]

REACTIONS (1)
  - Crying [None]
